FAERS Safety Report 6434008-1 (Version None)
Quarter: 2009Q4

REPORT INFORMATION
  Report Type: 
  Country: None (occurrence: None)
  Receive Date: 20091109
  Receipt Date: 20091109
  Transmission Date: 20100525
  Serious: Yes (Other)
  Sender: FDA-Public Use
  Company Number: None

PATIENT
  Sex: Female
  Weight: 47.6277 kg

DRUGS (1)
  1. SIMVASTATIN 40 MG TEVA USA ST-DEA AR6353990 [Suspect]
     Indication: BLOOD CHOLESTEROL
     Dosage: 1 A DAY
     Dates: start: 20081201, end: 20091018

REACTIONS (15)
  - ASTHENIA [None]
  - BALANCE DISORDER [None]
  - DIZZINESS [None]
  - FALL [None]
  - FATIGUE [None]
  - FEELING ABNORMAL [None]
  - HAIR TEXTURE ABNORMAL [None]
  - HEPATIC PAIN [None]
  - HYPOPHAGIA [None]
  - HYPOTONIA [None]
  - LIP PAIN [None]
  - NECK PAIN [None]
  - PAIN [None]
  - PAIN IN JAW [None]
  - PRURITUS [None]
